FAERS Safety Report 9846321 (Version 1)
Quarter: 2013Q4

REPORT INFORMATION
  Report Type: Spontaneous
  Country: US (occurrence: None)
  Receive Date: 20131224
  Receipt Date: 20131224
  Transmission Date: 20140711
  Serious: No
  Sender: FDA-Public Use
  Company Number: PHEH2013US021164

PATIENT
  Sex: 0

DRUGS (1)
  1. GILENYA(FINGOLIMOD) [Suspect]

REACTIONS (1)
  - No adverse event [None]
